FAERS Safety Report 21729790 (Version 1)
Quarter: 2022Q4

REPORT INFORMATION
  Report Type: Spontaneous
  Country: US (occurrence: US)
  Receive Date: 20221214
  Receipt Date: 20221214
  Transmission Date: 20230113
  Serious: No
  Sender: FDA-Public Use
  Company Number: US-Genus_Lifesciences-USA-POI0580202200175

PATIENT
  Age: 66 Year
  Sex: Female

DRUGS (9)
  1. OXYCODONE HYDROCHLORIDE [Suspect]
     Active Substance: OXYCODONE HYDROCHLORIDE
     Indication: Pain
     Dosage: UNKNOWN
     Route: 048
  2. OXYCODONE HYDROCHLORIDE [Suspect]
     Active Substance: OXYCODONE HYDROCHLORIDE
     Indication: Neuropathy peripheral
  3. TIVDAK [Suspect]
     Active Substance: TISOTUMAB VEDOTIN-TFTV
     Indication: Cervix carcinoma
     Dates: start: 20220720
  4. CYMBALTA [Concomitant]
     Active Substance: DULOXETINE HYDROCHLORIDE
     Indication: Neuropathy peripheral
  5. CLARITIN [Concomitant]
     Active Substance: LORATADINE
     Indication: Neuropathy peripheral
  6. MIRALAX [Concomitant]
     Active Substance: POLYETHYLENE GLYCOL 3350
     Indication: Constipation
  7. SENOKOT [Concomitant]
     Active Substance: SENNOSIDES
     Indication: Constipation
  8. VALERIAN [Concomitant]
     Active Substance: VALERIAN
     Indication: Insomnia
  9. ATIVAN [Concomitant]
     Active Substance: LORAZEPAM
     Indication: Product used for unknown indication
     Dosage: ONE HALF OF 0.25 MG AT MEALS

REACTIONS (1)
  - Constipation [Unknown]

NARRATIVE: CASE EVENT DATE: 20220701
